FAERS Safety Report 5890205-5 (Version None)
Quarter: 2008Q3

REPORT INFORMATION
  Report Type: 
  Country: None (occurrence: None)
  Receive Date: 20080919
  Receipt Date: 20080908
  Transmission Date: 20090109
  Serious: Yes (Hospitalization)
  Sender: FDA-Public Use
  Company Number: SE-PFIZER INC-2008076164

PATIENT
  Sex: Female

DRUGS (11)
  1. LYRICA [Suspect]
     Route: 048
     Dates: end: 20080808
  2. NABUMETONE [Interacting]
     Indication: RHEUMATOID ARTHRITIS
     Route: 048
  3. LITHIUM CARBONATE [Interacting]
     Indication: DEPRESSION
     Route: 048
  4. ZOLOFT [Concomitant]
     Route: 048
  5. PAMOL [Concomitant]
     Route: 048
  6. MIRTAZAPINE [Interacting]
     Route: 048
  7. ALPRAZOLAM [Concomitant]
     Route: 048
  8. PROPAVAN [Concomitant]
     Route: 048
  9. ALL OTHER THERAPEUTIC PRODUCTS [Concomitant]
     Route: 048
  10. DOLCONTIN [Concomitant]
     Route: 048
  11. ZYPREXA [Interacting]

REACTIONS (3)
  - DIZZINESS [None]
  - DRUG THERAPEUTIC INCOMPATIBILITY [None]
  - SOMNOLENCE [None]
